FAERS Safety Report 9291768 (Version 2)
Quarter: 2013Q3

REPORT INFORMATION
  Report Type: Spontaneous
  Country: SE (occurrence: SE)
  Receive Date: 20130516
  Receipt Date: 20130711
  Transmission Date: 20140515
  Serious: Yes (Life-Threatening, Hospitalization, Disabling, Other)
  Sender: FDA-Public Use
  Company Number: SE-ROCHE-1219924

PATIENT
  Age: 57 Year
  Sex: Female
  Weight: 55.5 kg

DRUGS (6)
  1. ROACTEMRA [Suspect]
     Indication: RHEUMATOID ARTHRITIS
     Route: 042
     Dates: start: 20091215, end: 20120907
  2. PREDNISOLON [Concomitant]
     Indication: RHEUMATOID ARTHRITIS
     Route: 048
  3. NAPROXEN [Concomitant]
     Indication: RHEUMATOID ARTHRITIS
     Route: 048
  4. DOLCONTIN [Concomitant]
     Route: 048
  5. ALVEDON [Concomitant]
     Route: 048
  6. VALTREX [Concomitant]
     Indication: GENITAL HERPES
     Route: 048

REACTIONS (5)
  - Abscess [Recovered/Resolved with Sequelae]
  - Large intestine perforation [Recovered/Resolved with Sequelae]
  - Diverticulitis [Unknown]
  - Rheumatoid arthritis [Unknown]
  - Depression [Unknown]
